FAERS Safety Report 22780584 (Version 4)
Quarter: 2024Q3

REPORT INFORMATION
  Report Type: Spontaneous
  Country: CA (occurrence: CA)
  Receive Date: 20230803
  Receipt Date: 20240920
  Transmission Date: 20241017
  Serious: Yes (Hospitalization, Other)
  Sender: CELLTRION
  Company Number: CA-CELLTRION INC.-2021CA019450

PATIENT

DRUGS (21)
  1. RITUXIMAB [Suspect]
     Active Substance: RITUXIMAB
     Indication: Rheumatoid arthritis
     Dosage: 1000.0 MILLIGRAM, 1 EVERY 15 DAYS
     Route: 041
  2. RITUXIMAB [Suspect]
     Active Substance: RITUXIMAB
     Dosage: 1000.0 MILLIGRAM
     Route: 042
  3. RITUXIMAB [Suspect]
     Active Substance: RITUXIMAB
     Dosage: 1000.0 MILLIGRAM
     Route: 042
  4. CIPROFLOXACIN [Suspect]
     Active Substance: CIPROFLOXACIN
     Indication: Product used for unknown indication
     Route: 065
  5. METFORMIN [Suspect]
     Active Substance: METFORMIN HYDROCHLORIDE
     Indication: Product used for unknown indication
     Route: 065
  6. METFORMIN [Suspect]
     Active Substance: METFORMIN HYDROCHLORIDE
     Dosage: UNK
     Route: 065
  7. RISEDRONATE SODIUM [Suspect]
     Active Substance: RISEDRONATE SODIUM
     Indication: Osteoporosis
     Dosage: 35 MILLIGRAM,1 EVERY 1 WEEKS
     Route: 065
  8. ACETAMINOPHEN [Concomitant]
     Active Substance: ACETAMINOPHEN
     Indication: Premedication
     Dosage: 650 MILLIGRAM
     Route: 048
  9. ALLOPURINOL [Concomitant]
     Active Substance: ALLOPURINOL
     Dosage: 25.0 MILLIGRAM
     Route: 065
  10. CALCIUM [Concomitant]
     Active Substance: CALCIUM
     Indication: Osteoporosis
     Dosage: 500 MILLIGRAM
     Route: 065
  11. DIPHENHYDRAMINE HYDROCHLORIDE [Concomitant]
     Active Substance: DIPHENHYDRAMINE HYDROCHLORIDE
     Indication: Premedication
     Dosage: 50 MILLIGRAM
     Route: 065
  12. ELAVIL [Concomitant]
     Active Substance: AMITRIPTYLINE HYDROCHLORIDE
     Dosage: 25 MILLIGRAM
     Route: 065
  13. ENALAPRILAT [Concomitant]
     Active Substance: ENALAPRILAT
  14. HYDROCHLOROTHIAZIDE [Concomitant]
     Active Substance: HYDROCHLOROTHIAZIDE
  15. METHYLPREDNISOLONE [Concomitant]
     Active Substance: METHYLPREDNISOLONE
     Indication: Premedication
     Dosage: 100 MILLIGRAM
     Route: 042
  16. PREDNISONE [Concomitant]
     Active Substance: PREDNISONE
  17. RISEDRONATE SODIUM [Concomitant]
     Active Substance: RISEDRONATE SODIUM
     Indication: Osteoporosis
     Dosage: 35 MILLIGRAM, 1 EVERY 1 WEEKS
     Route: 065
  18. PANTOPRAZOLE MAGNESIUM [Concomitant]
     Active Substance: PANTOPRAZOLE MAGNESIUM
     Route: 065
  19. TYLENOL [Concomitant]
     Active Substance: ACETAMINOPHEN
  20. ZOLEDRONIC ACID [Concomitant]
     Active Substance: ZOLEDRONIC ACID
     Route: 042
  21. ZOLEDRONIC ACID [Concomitant]
     Active Substance: ZOLEDRONIC ACID
     Route: 042

REACTIONS (22)
  - Intestinal perforation [Not Recovered/Not Resolved]
  - Blood pressure diastolic abnormal [Not Recovered/Not Resolved]
  - Blood pressure diastolic decreased [Not Recovered/Not Resolved]
  - Blood pressure systolic increased [Not Recovered/Not Resolved]
  - Blood pressure systolic abnormal [Not Recovered/Not Resolved]
  - Oxygen saturation decreased [Not Recovered/Not Resolved]
  - Heart rate decreased [Not Recovered/Not Resolved]
  - Contusion [Not Recovered/Not Resolved]
  - Fall [Not Recovered/Not Resolved]
  - Joint swelling [Not Recovered/Not Resolved]
  - Large intestinal polypectomy [Not Recovered/Not Resolved]
  - Polypectomy [Not Recovered/Not Resolved]
  - Pulmonary congestion [Not Recovered/Not Resolved]
  - Constipation [Not Recovered/Not Resolved]
  - Abdominal pain upper [Not Recovered/Not Resolved]
  - Diverticulitis [Not Recovered/Not Resolved]
  - Hypertension [Not Recovered/Not Resolved]
  - Nasopharyngitis [Not Recovered/Not Resolved]
  - Nausea [Not Recovered/Not Resolved]
  - Abdominal pain [Not Recovered/Not Resolved]
  - Abscess intestinal [Not Recovered/Not Resolved]
  - Intentional product use issue [Unknown]
